FAERS Safety Report 5155474-8 (Version None)
Quarter: 2006Q4

REPORT INFORMATION
  Report Type: 
  Country: None (occurrence: None)
  Receive Date: 20061114
  Receipt Date: 20061102
  Transmission Date: 20070319
  Serious: Yes (Other)
  Sender: FDA-Public Use
  Company Number: 2006BH014443

PATIENT
  Sex: Female

DRUGS (1)
  1. FENTANYL CITRATE [Suspect]
     Indication: DRUG USE FOR UNKNOWN INDICATION
     Dosage: 2000 UG; UNK ; IV
     Route: 042

REACTIONS (2)
  - DEVICE MALFUNCTION [None]
  - OVERDOSE [None]
